FAERS Safety Report 9078825 (Version 2)
Quarter: 2013Q1

REPORT INFORMATION
  Report Type: Spontaneous
  Country: CA (occurrence: CA)
  Receive Date: 20130215
  Receipt Date: 20130225
  Transmission Date: 20140127
  Serious: Yes (Hospitalization, Other)
  Sender: FDA-Public Use
  Company Number: CA-ELI_LILLY_AND_COMPANY-CA201210006398

PATIENT
  Sex: Male

DRUGS (7)
  1. EFFIENT [Suspect]
     Indication: STENT PLACEMENT
     Dosage: 10 MG, UNKNOWN
     Route: 065
     Dates: start: 20121018
  2. EFFIENT [Suspect]
     Dosage: 10 MG, UNK
     Dates: end: 20130108
  3. ASA [Concomitant]
  4. INSULIN [Concomitant]
  5. NITROGLYCERINE [Concomitant]
     Indication: CHEST PAIN
  6. SENOKOT [Concomitant]
  7. PLAVIX [Concomitant]
     Dosage: UNK

REACTIONS (18)
  - Device occlusion [Recovered/Resolved]
  - Ejection fraction decreased [Not Recovered/Not Resolved]
  - Chest pain [Recovered/Resolved]
  - Somnolence [Not Recovered/Not Resolved]
  - Headache [Recovered/Resolved]
  - Paraesthesia [Recovered/Resolved]
  - Weight increased [Not Recovered/Not Resolved]
  - Myalgia [Recovering/Resolving]
  - Haemorrhage [Recovered/Resolved]
  - Pallor [Recovered/Resolved]
  - Heart rate irregular [Recovered/Resolved]
  - Electrocardiogram abnormal [Recovered/Resolved]
  - Blood creatine phosphokinase increased [Recovering/Resolving]
  - Chest pain [Not Recovered/Not Resolved]
  - Headache [Unknown]
  - Fatigue [Unknown]
  - Functional gastrointestinal disorder [Unknown]
  - Dry skin [Recovered/Resolved]
